FAERS Safety Report 9223883 (Version 2)
Quarter: 2013Q2

REPORT INFORMATION
  Report Type: Spontaneous
  Country: US (occurrence: US)
  Receive Date: 20130411
  Receipt Date: 20130502
  Transmission Date: 20140414
  Serious: Yes (Hospitalization)
  Sender: FDA-Public Use
  Company Number: US-BIOGENIDEC-2013BI030773

PATIENT
  Sex: Female

DRUGS (1)
  1. AVONEX [Suspect]
     Indication: MULTIPLE SCLEROSIS
     Route: 030
     Dates: start: 20070801

REACTIONS (12)
  - Dysmenorrhoea [Recovered/Resolved]
  - Menorrhagia [Recovered/Resolved]
  - Muscle atrophy [Not Recovered/Not Resolved]
  - Intervertebral disc protrusion [Not Recovered/Not Resolved]
  - Pupillary disorder [Unknown]
  - Migraine [Unknown]
  - Sensation of heaviness [Unknown]
  - Stress [Not Recovered/Not Resolved]
  - Nausea [Recovered/Resolved]
  - Pain in jaw [Not Recovered/Not Resolved]
  - Insomnia [Unknown]
  - Muscle spasms [Recovered/Resolved]
